FAERS Safety Report 8318275-5 (Version None)
Quarter: 2012Q2

REPORT INFORMATION
  Report Type: 
  Country: None (occurrence: None)
  Receive Date: 20120427
  Receipt Date: 20120417
  Transmission Date: 20120825
  Serious: Yes (Other)
  Sender: FDA-Public Use
  Company Number: DE-AMGEN-DEUSP2012011581

PATIENT
  Age: 52 Year
  Sex: Female
  Weight: 53 kg

DRUGS (5)
  1. LA FEMME [Suspect]
  2. PREDNISOLONE [Suspect]
     Dosage: UNK
  3. REWODINA ^ARZNEIMITTELWERK^ [Concomitant]
     Dosage: UNK
  4. METHOTREXATE SODIUM [Concomitant]
     Dosage: UNK
  5. ENBREL [Suspect]
     Indication: RHEUMATOID ARTHRITIS
     Dosage: 50 MG, WEEKLY
     Route: 058
     Dates: start: 20091204

REACTIONS (2)
  - DEPRESSED MOOD [None]
  - WEIGHT INCREASED [None]
